FAERS Safety Report 9109496 (Version 4)
Quarter: 2013Q4

REPORT INFORMATION
  Report Type: Spontaneous
  Country: JP (occurrence: JP)
  Receive Date: 20130222
  Receipt Date: 20131114
  Transmission Date: 20140711
  Serious: Yes (Hospitalization)
  Sender: FDA-Public Use
  Company Number: PHHY2013JP017563

PATIENT
  Age: 65 Year
  Sex: Male
  Weight: 83 kg

DRUGS (5)
  1. CO-DIOVAN [Suspect]
     Indication: HYPERTENSION
     Dosage: 1 DF, DAILY
     Route: 048
     Dates: start: 20100907, end: 20130219
  2. AMLODIPINE [Suspect]
     Dosage: UNK UKN, UNK
     Route: 048
  3. FLUITRAN [Concomitant]
     Dosage: UNK UKN, UNK
     Route: 048
  4. SENNOSIDE [Concomitant]
     Dosage: 12 MG, UNK
     Route: 048
  5. NORVASC [Concomitant]
     Dosage: 5 MG, UNK
     Route: 048

REACTIONS (3)
  - Rhabdomyolysis [Recovered/Resolved]
  - Muscular weakness [Unknown]
  - Blood creatine phosphokinase increased [Unknown]
